FAERS Safety Report 19994737 (Version 1)
Quarter: 2021Q4

REPORT INFORMATION
  Report Type: Spontaneous
  Country: US (occurrence: US)
  Receive Date: 20211025
  Receipt Date: 20211025
  Transmission Date: 20220303
  Serious: Yes (Death)
  Sender: FDA-Public Use
  Company Number: None

PATIENT
  Sex: Male
  Weight: 93.6 kg

DRUGS (7)
  1. IVERMECTIN [Suspect]
     Active Substance: IVERMECTIN
     Indication: COVID-19
     Dosage: ?          QUANTITY:25 TABLET(S);OTHER FREQUENCY:5 CAPSUELS A DAY;
     Route: 048
     Dates: start: 20210903, end: 20210908
  2. DEXAMETHASONE [Suspect]
     Active Substance: DEXAMETHASONE
     Indication: COVID-19
     Dosage: ?          QUANTITY:5 CAPSULE(S);
     Route: 048
     Dates: start: 20210903, end: 20210908
  3. ALBUTEROL HFA ORAL INHALER [Concomitant]
  4. ZITHROMAX [Concomitant]
     Active Substance: AZITHROMYCIN DIHYDRATE
  5. DECADRON [Concomitant]
     Active Substance: DEXAMETHASONE
  6. PULMICORT TURBUHALER [Concomitant]
     Active Substance: BUDESONIDE
  7. VITAMIN C [Concomitant]
     Active Substance: ASCORBIC ACID

REACTIONS (1)
  - Death [None]
